FAERS Safety Report 17833008 (Version 1)
Quarter: 2020Q2

REPORT INFORMATION
  Report Type: Spontaneous
  Country: US (occurrence: US)
  Receive Date: 20200528
  Receipt Date: 20200528
  Transmission Date: 20200714
  Serious: No
  Sender: FDA-Public Use
  Company Number: US-UCBSA-2019052907

PATIENT
  Sex: Female

DRUGS (2)
  1. CIMZIA [Suspect]
     Active Substance: CERTOLIZUMAB PEGOL
     Indication: PSORIATIC ARTHROPATHY
  2. CIMZIA [Suspect]
     Active Substance: CERTOLIZUMAB PEGOL
     Indication: PSORIASIS
     Dosage: UNK
     Route: 058
     Dates: start: 2018

REACTIONS (7)
  - Poor quality sleep [Unknown]
  - Flushing [Unknown]
  - Skin discolouration [Unknown]
  - Nervousness [Unknown]
  - Therapeutic response decreased [Unknown]
  - Rash [Unknown]
  - Back pain [Not Recovered/Not Resolved]
